FAERS Safety Report 25680140 (Version 2)
Quarter: 2025Q3

REPORT INFORMATION
  Report Type: Spontaneous
  Country: CA (occurrence: CA)
  Receive Date: 20250814
  Receipt Date: 20250925
  Transmission Date: 20251021
  Serious: Yes (Other)
  Sender: TAKEDA
  Company Number: CA-TAKEDA-2025TUS071512

PATIENT
  Age: 36 Year
  Sex: Male
  Weight: 87 kg

DRUGS (12)
  1. DEXILANT [Suspect]
     Active Substance: DEXLANSOPRAZOLE
     Indication: Product used for unknown indication
  2. TYLENOL [Suspect]
     Active Substance: ACETAMINOPHEN
     Indication: Product used for unknown indication
  3. DICLOFENAC [Suspect]
     Active Substance: DICLOFENAC
     Indication: Product used for unknown indication
  4. INFLIXIMAB [Suspect]
     Active Substance: INFLIXIMAB
     Indication: Ankylosing spondylitis
  5. INFLIXIMAB [Suspect]
     Active Substance: INFLIXIMAB
  6. INFLIXIMAB [Suspect]
     Active Substance: INFLIXIMAB
  7. INFLIXIMAB [Suspect]
     Active Substance: INFLIXIMAB
  8. INFLIXIMAB [Suspect]
     Active Substance: INFLIXIMAB
     Dosage: UNK UNK, Q4WEEKS
  9. INFLIXIMAB [Suspect]
     Active Substance: INFLIXIMAB
  10. INFLIXIMAB [Suspect]
     Active Substance: INFLIXIMAB
  11. INFLIXIMAB [Suspect]
     Active Substance: INFLIXIMAB
  12. INFLIXIMAB [Suspect]
     Active Substance: INFLIXIMAB

REACTIONS (13)
  - Abdominal pain [Not Recovered/Not Resolved]
  - Haemoptysis [Not Recovered/Not Resolved]
  - Fatigue [Recovered/Resolved]
  - Therapeutic response shortened [Not Recovered/Not Resolved]
  - Pyrexia [Not Recovered/Not Resolved]
  - Nasopharyngitis [Not Recovered/Not Resolved]
  - Off label use [Not Recovered/Not Resolved]
  - Musculoskeletal chest pain [Not Recovered/Not Resolved]
  - Condition aggravated [Not Recovered/Not Resolved]
  - Testicular mass [Recovering/Resolving]
  - Testicular swelling [Not Recovered/Not Resolved]
  - Testis cancer [Recovering/Resolving]
  - Drug hypersensitivity [Unknown]

NARRATIVE: CASE EVENT DATE: 20240101
